FAERS Safety Report 20616917 (Version 1)
Quarter: 2022Q1

REPORT INFORMATION
  Report Type: Spontaneous
  Country: US (occurrence: US)
  Receive Date: 20220321
  Receipt Date: 20220321
  Transmission Date: 20220423
  Serious: No
  Sender: FDA-Public Use
  Company Number: US-KARYOPHARM-2022KPT000305

PATIENT

DRUGS (1)
  1. XPOVIO [Suspect]
     Active Substance: SELINEXOR
     Indication: B-cell lymphoma
     Dosage: 60 MG, WEEKLY
     Route: 048
     Dates: start: 202111

REACTIONS (1)
  - Dizziness [Unknown]

NARRATIVE: CASE EVENT DATE: 20220308
